FAERS Safety Report 9375554 (Version 1)
Quarter: 2013Q2

REPORT INFORMATION
  Report Type: Report from Study
  Country: US (occurrence: US)
  Receive Date: 20130628
  Receipt Date: 20130628
  Transmission Date: 20140414
  Serious: Yes (Other)
  Sender: FDA-Public Use
  Company Number: US-ABBOTT-13P-163-1108352-00

PATIENT
  Age: 54 Year
  Sex: Female
  Weight: 98.97 kg

DRUGS (1)
  1. HUMIRA [Suspect]
     Indication: PSORIASIS
     Route: 058
     Dates: start: 201201, end: 201201

REACTIONS (2)
  - Bone loss [Recovered/Resolved]
  - Tooth extraction [Recovered/Resolved]
